FAERS Safety Report 9269072 (Version 1)
Quarter: 2013Q2

REPORT INFORMATION
  Report Type: Spontaneous
  Country: DE (occurrence: DE)
  Receive Date: 20130503
  Receipt Date: 20130503
  Transmission Date: 20140414
  Serious: Yes (Death)
  Sender: FDA-Public Use
  Company Number: DE-RANBAXY-2013RR-68290

PATIENT
  Age: 79 Year
  Sex: Female
  Weight: 52 kg

DRUGS (5)
  1. METFORMIN [Suspect]
     Indication: DIABETES MELLITUS
     Dosage: 1000 MG, BID
     Route: 065
  2. PRADAXA [Suspect]
     Indication: PERIPHERAL ARTERIAL OCCLUSIVE DISEASE
     Dosage: 150 MG, BID
     Route: 048
     Dates: start: 20120820
  3. CLOPIDOGREL [Concomitant]
     Indication: PERIPHERAL ARTERIAL OCCLUSIVE DISEASE
     Dosage: 75 MG, QD
     Route: 065
  4. OXYGESIC RET. [Concomitant]
     Indication: ANALGESIC THERAPY
     Dosage: 5 MG, BID
     Route: 065
     Dates: start: 20120903, end: 20120904
  5. NOVALGIN TROPFEN [Concomitant]
     Indication: ANALGESIC THERAPY
     Dosage: 30 GTT, QID
     Route: 065
     Dates: start: 20120902, end: 20120904

REACTIONS (5)
  - Hypotension [Fatal]
  - Lactic acidosis [Fatal]
  - Multi-organ failure [Fatal]
  - Resuscitation [Fatal]
  - Somnolence [Fatal]
